FAERS Safety Report 8598317-2 (Version None)
Quarter: 2012Q3

REPORT INFORMATION
  Report Type: 
  Country: None (occurrence: None)
  Receive Date: 20120816
  Receipt Date: 20120807
  Transmission Date: 20120928
  Serious: Yes (Other)
  Sender: FDA-Public Use
  Company Number: US-ASTRAZENECA-2012SE55630

PATIENT
  Age: 41 Year
  Sex: Female
  Weight: 74.8 kg

DRUGS (8)
  1. SEROQUEL [Suspect]
     Route: 048
  2. NEURONTIN [Concomitant]
     Dosage: TID
  3. PAXIL [Concomitant]
  4. SEROQUEL [Suspect]
     Indication: BIPOLAR DISORDER
     Route: 048
  5. SEROQUEL [Suspect]
     Route: 048
  6. CLONIDINE [Concomitant]
  7. HYDROCHLOROTHIAZIDE [Concomitant]
  8. TEGRETOL [Concomitant]

REACTIONS (2)
  - SWELLING [None]
  - ANKLE FRACTURE [None]
